FAERS Safety Report 14955358 (Version 1)
Quarter: 2018Q2

REPORT INFORMATION
  Report Type: Spontaneous
  Country: BE (occurrence: BE)
  Receive Date: 20180531
  Receipt Date: 20180531
  Transmission Date: 20180711
  Serious: Yes (Other)
  Sender: FDA-Public Use
  Company Number: BE-MERCK KGAA-2048741

PATIENT
  Age: 73 Year
  Sex: Female

DRUGS (10)
  1. NOVOTHYROX [Suspect]
     Active Substance: LEVOTHYROXINE SODIUM
  2. BELSAR PLUS (BENICAR HCT) [Concomitant]
  3. NOVOTHYROX [Suspect]
     Active Substance: LEVOTHYROXINE SODIUM
     Indication: PRODUCT USED FOR UNKNOWN INDICATION
  4. NOVOTHYROX [Suspect]
     Active Substance: LEVOTHYROXINE SODIUM
  5. PANTOMED [Concomitant]
  6. DAFALGAN [Suspect]
     Active Substance: ACETAMINOPHEN
  7. CIPRALEX [Concomitant]
     Active Substance: ESCITALOPRAM OXALATE
  8. DUROGESIC [Concomitant]
     Active Substance: FENTANYL
  9. CORTISONE [Concomitant]
     Active Substance: CORTISONE\HYDROCORTISONE
  10. SOTALEX [Concomitant]
     Active Substance: SOTALOL

REACTIONS (2)
  - Mental disorder [Unknown]
  - Feeling abnormal [Unknown]
